FAERS Safety Report 5153861-5 (Version None)
Quarter: 2006Q4

REPORT INFORMATION
  Report Type: 
  Country: None (occurrence: None)
  Receive Date: 20061120
  Receipt Date: 20061117
  Transmission Date: 20070319
  Serious: Yes (Death)
  Sender: FDA-Public Use
  Company Number: PHNU2006DE03836

PATIENT
  Sex: Male
  Weight: 92.6 kg

DRUGS (3)
  1. LEPONEX [Suspect]
     Indication: SCHIZOPHRENIA
     Dosage: UP TO 200 MG/DAY
     Route: 048
  2. ZYPREXA [Concomitant]
     Indication: SCHIZOPHRENIA
     Dosage: UP TO 45 MG/DAY
     Route: 048
  3. ESCITALOPRAM OXALATE [Concomitant]
     Indication: SCHIZOPHRENIA
     Dosage: 10 MG/DAY
     Route: 048

REACTIONS (2)
  - EOSINOPHILIC MYOCARDITIS [None]
  - INFLUENZA LIKE ILLNESS [None]
